FAERS Safety Report 5115108-5 (Version None)
Quarter: 2006Q3

REPORT INFORMATION
  Report Type: 
  Country: None (occurrence: None)
  Receive Date: 20060925
  Receipt Date: 20060925
  Transmission Date: 20061208
  Serious: Yes (Other)
  Sender: FDA-Public Use
  Company Number: None

PATIENT
  Age: 22 Year
  Sex: Female
  Weight: 57.6068 kg

DRUGS (1)
  1. TRAZODONE HCL [Suspect]
     Indication: DEPRESSION
     Dosage: 100 3 DAYS PO
     Route: 048
     Dates: start: 20060509, end: 20060511

REACTIONS (1)
  - RASH [None]
